FAERS Safety Report 8609081 (Version 3)
Quarter: 2013Q2

REPORT INFORMATION
  Report Type: Spontaneous
  Country: US (occurrence: US)
  Receive Date: 20120611
  Receipt Date: 20130611
  Transmission Date: 20140414
  Serious: Yes (Other)
  Sender: FDA-Public Use
  Company Number: US-ASTRAZENECA-2012SE37145

PATIENT
  Age: 68 Year
  Sex: Female
  Weight: 108 kg

DRUGS (2)
  1. NEXIUM [Suspect]
     Indication: GASTROOESOPHAGEAL REFLUX DISEASE
     Route: 048
     Dates: start: 2011, end: 201304
  2. HYDROCODONE [Concomitant]
     Indication: PAIN
     Route: 048
     Dates: start: 2002

REACTIONS (9)
  - Cerebrovascular accident [Unknown]
  - Memory impairment [Unknown]
  - Impaired work ability [Unknown]
  - Musculoskeletal pain [Unknown]
  - Malaise [Unknown]
  - Abdominal pain upper [Unknown]
  - Vomiting [Not Recovered/Not Resolved]
  - Diarrhoea [Not Recovered/Not Resolved]
  - Intentional drug misuse [Unknown]
